FAERS Safety Report 21433326 (Version 1)
Quarter: 2022Q4

REPORT INFORMATION
  Report Type: Spontaneous
  Country: CH (occurrence: CH)
  Receive Date: 20221010
  Receipt Date: 20221010
  Transmission Date: 20230113
  Serious: Yes (Life-Threatening, Hospitalization, Other)
  Sender: FDA-Public Use
  Company Number: CH-STRIDES ARCOLAB LIMITED-2022SP012840

PATIENT
  Age: 61 Year
  Sex: Female

DRUGS (4)
  1. ETOPOSIDE [Suspect]
     Active Substance: ETOPOSIDE
     Indication: Small cell lung cancer
     Dosage: UNK, CYCLICAL (INITIAL DOSAGE NOT STATED; SECOND CYCLE)
     Route: 065
     Dates: start: 201911
  2. ETOPOSIDE [Suspect]
     Active Substance: ETOPOSIDE
     Dosage: 100 MILLIGRAM, TOTAL (TOTAL DOSE OF 100MG)
     Route: 065
  3. ETOPOSIDE [Suspect]
     Active Substance: ETOPOSIDE
     Dosage: 50 MILLIGRAM, TOTAL (TOTAL DOSE OF 50MG; DOSE DECREASED)
     Route: 065
  4. CISPLATIN [Concomitant]
     Active Substance: CISPLATIN
     Indication: Small cell lung cancer
     Dosage: UNK, CYCLICAL (SECOND CYCLE)
     Route: 065
     Dates: start: 201911

REACTIONS (4)
  - Cardio-respiratory arrest [Unknown]
  - Hypersensitivity [Unknown]
  - Dyspnoea [Unknown]
  - Haematotoxicity [Unknown]

NARRATIVE: CASE EVENT DATE: 20191101
